FAERS Safety Report 8189552-6 (Version None)
Quarter: 2012Q1

REPORT INFORMATION
  Report Type: 
  Country: None (occurrence: None)
  Receive Date: 20120307
  Receipt Date: 20120228
  Transmission Date: 20120608
  Serious: Yes (Hospitalization)
  Sender: FDA-Public Use
  Company Number: IT-UCBSA-027052

PATIENT
  Age: 15 Year
  Sex: Male

DRUGS (3)
  1. KEPPRA [Concomitant]
     Dosage: DAILY DOSE: 750 MG
  2. LIORESAL [Concomitant]
     Dosage: DAILY DOSE: 15 MG
  3. VIMPAT [Suspect]
     Indication: PARTIAL SEIZURES
     Route: 048
     Dates: start: 20101201, end: 20101228

REACTIONS (3)
  - BRADYCARDIA [None]
  - HYPOTHERMIA [None]
  - URINARY RETENTION [None]
